FAERS Safety Report 5788260-6 (Version None)
Quarter: 2008Q2

REPORT INFORMATION
  Report Type: 
  Country: None (occurrence: None)
  Receive Date: 20080625
  Receipt Date: 20080613
  Transmission Date: 20081010
  Serious: Yes (Other)
  Sender: FDA-Public Use
  Company Number: US-PFIZER INC-2007090923

PATIENT
  Sex: Female
  Weight: 55.3 kg

DRUGS (3)
  1. CHANTIX [Suspect]
     Indication: SMOKING CESSATION THERAPY
     Route: 048
     Dates: start: 20070901, end: 20071201
  2. ARMOUR THYROID [Concomitant]
     Indication: THYROID DISORDER
     Route: 048
  3. IMIPRAMINE [Concomitant]
     Route: 048

REACTIONS (10)
  - ANXIETY [None]
  - CONSTIPATION [None]
  - FATIGUE [None]
  - FEELING ABNORMAL [None]
  - HYPERSOMNIA [None]
  - INTESTINAL FUNCTIONAL DISORDER [None]
  - MOBILITY DECREASED [None]
  - NAUSEA [None]
  - VOMITING [None]
  - WEIGHT INCREASED [None]
